FAERS Safety Report 19963799 (Version 1)
Quarter: 2021Q4

REPORT INFORMATION
  Report Type: Spontaneous
  Country: US (occurrence: US)
  Receive Date: 20211013
  Receipt Date: 20211013
  Transmission Date: 20220303
  Serious: No
  Sender: FDA-Public Use
  Company Number: None

PATIENT
  Age: 69 Year
  Sex: Male
  Weight: 97.52 kg

DRUGS (7)
  1. LOTRIMIN ANTIFUNGAL (MICONAZOLE NITRATE) [Suspect]
     Active Substance: MICONAZOLE NITRATE
     Indication: Fungal infection
     Dosage: ?OTHER FREQUENCY:ONCE DAILY -SHOWER?;OTHER ROUTE:SPRAY ON POWDER
     Route: 061
     Dates: start: 20200707, end: 20200709
  2. DEVICE [Concomitant]
     Active Substance: DEVICE
  3. PRAVASTATIN [Concomitant]
     Active Substance: PRAVASTATIN
  4. TRAMADOL [Concomitant]
     Active Substance: TRAMADOL
  5. TOLTERODINE TART ER [Concomitant]
  6. TYLENOL [Concomitant]
     Active Substance: ACETAMINOPHEN
  7. NAPROXEN [Concomitant]
     Active Substance: NAPROXEN

REACTIONS (3)
  - Application site pain [None]
  - Application site rash [None]
  - Urticaria [None]

NARRATIVE: CASE EVENT DATE: 20200708
